FAERS Safety Report 21612535 (Version 4)
Quarter: 2022Q4

REPORT INFORMATION
  Report Type: Report from Study
  Country: DE (occurrence: None)
  Receive Date: 20221118
  Receipt Date: 20221208
  Transmission Date: 20230112
  Serious: Yes (Hospitalization)
  Sender: FDA-Public Use
  Company Number: DE-ROCHE-3219358

PATIENT
  Age: 72 Year
  Sex: Male

DRUGS (8)
  1. OBINUTUZUMAB [Suspect]
     Active Substance: OBINUTUZUMAB
     Indication: Chronic lymphocytic leukaemia
     Dosage: LAST DOSE ADMINISTRATION 1000MG, LAST DATE ADMINISTRATION DATE 01/NOV/2022
     Route: 042
     Dates: start: 20220926
  2. VENETOCLAX [Suspect]
     Active Substance: VENETOCLAX
     Indication: Chronic lymphocytic leukaemia
     Dosage: LAST DOSE 50MG ON 01/NOV/2022
     Route: 048
     Dates: start: 20221025
  3. ACICLO [Concomitant]
  4. CEFUROXIME AXETIL [Concomitant]
     Active Substance: CEFUROXIME AXETIL
  5. FUSICUTAN [BETAMETHASONE VALERATE;FUSIDIC ACID] [Concomitant]
  6. DEXAMETHASONE [Concomitant]
     Active Substance: DEXAMETHASONE
     Dates: start: 20221114, end: 20221122
  7. PAXLOVID [Concomitant]
     Active Substance: NIRMATRELVIR\RITONAVIR
     Dates: start: 20221115, end: 20221118
  8. AMPICILLIN SODIUM\SULBACTAM SODIUM [Concomitant]
     Active Substance: AMPICILLIN SODIUM\SULBACTAM SODIUM
     Dates: start: 20221114, end: 20221121

REACTIONS (1)
  - COVID-19 pneumonia [Recovered/Resolved]

NARRATIVE: CASE EVENT DATE: 20221114
